FAERS Safety Report 22109384 (Version 9)
Quarter: 2024Q1

REPORT INFORMATION
  Report Type: Spontaneous
  Country: US (occurrence: US)
  Receive Date: 20230317
  Receipt Date: 20240205
  Transmission Date: 20240410
  Serious: Yes (Other)
  Sender: FDA-Public Use
  Company Number: US-BRISTOL-MYERS SQUIBB COMPANY-2023-035551

PATIENT
  Age: 79 Year
  Sex: Female

DRUGS (2)
  1. LENALIDOMIDE [Suspect]
     Active Substance: LENALIDOMIDE
     Indication: Monoclonal gammopathy
     Dosage: FREQUENCY: TAKE  CAPSULE BY MOUTH EVERY DAY
     Route: 048
     Dates: start: 20220114
  2. LENALIDOMIDE [Suspect]
     Active Substance: LENALIDOMIDE
     Dosage: FREQUENCY: TAKE  CAPSULE BY MOUTH EVERY DAY
     Route: 048
     Dates: start: 20220114

REACTIONS (9)
  - COVID-19 [Recovered/Resolved]
  - Skin disorder [Not Recovered/Not Resolved]
  - Off label use [Unknown]
  - Product dose omission in error [Unknown]
  - Basal cell carcinoma [Not Recovered/Not Resolved]
  - Abdominal pain upper [Not Recovered/Not Resolved]
  - Neuropathy peripheral [Not Recovered/Not Resolved]
  - Diarrhoea [Not Recovered/Not Resolved]
  - Skin cancer [Not Recovered/Not Resolved]

NARRATIVE: CASE EVENT DATE: 20230501
